FAERS Safety Report 25488738 (Version 1)
Quarter: 2025Q2

REPORT INFORMATION
  Report Type: Spontaneous
  Country: US (occurrence: US)
  Receive Date: 20250627
  Receipt Date: 20250627
  Transmission Date: 20250717
  Serious: No
  Sender: Unknown Manufacturer
  Company Number: US-THERATECHNOLOGIES INC.-2025-THE-TES-000165

PATIENT

DRUGS (1)
  1. EGRIFTA SV [Suspect]
     Active Substance: TESAMORELIN ACETATE
     Indication: HIV infection
     Dosage: 1.4 MG (0.35 ML), QD
     Route: 058
     Dates: start: 20250513

REACTIONS (4)
  - Diarrhoea [Unknown]
  - Nausea [Recovered/Resolved]
  - Product dose omission in error [Unknown]
  - Vomiting projectile [Recovered/Resolved]
